FAERS Safety Report 9286438 (Version 1)
Quarter: 2013Q2

REPORT INFORMATION
  Report Type: Spontaneous
  Country: US (occurrence: US)
  Receive Date: 20130513
  Receipt Date: 20130513
  Transmission Date: 20140414
  Serious: Yes (Other)
  Sender: FDA-Public Use
  Company Number: US-JNJFOC-20130501576

PATIENT
  Sex: 0

DRUGS (1)
  1. XARELTO [Suspect]
     Indication: DEEP VEIN THROMBOSIS
     Dosage: STRENGTH: 20 MG
     Route: 048
     Dates: start: 201304

REACTIONS (1)
  - Deep vein thrombosis [Recovered/Resolved]
